FAERS Safety Report 5060194-4 (Version None)
Quarter: 2006Q3

REPORT INFORMATION
  Report Type: 
  Country: None (occurrence: None)
  Receive Date: 20060718
  Receipt Date: 20060630
  Transmission Date: 20061208
  Serious: Yes (Hospitalization)
  Sender: FDA-Public Use
  Company Number: AU200607001034

PATIENT
  Age: 90 Year
  Sex: Female

DRUGS (3)
  1. EVISTA [Suspect]
     Indication: OSTEOPOROSIS
  2. LOSEC (OMEPRAZOLE) [Concomitant]
  3. CALTRATE (CALCIUM CARBONATE) [Concomitant]

REACTIONS (2)
  - FALL [None]
  - RADIUS FRACTURE [None]
